FAERS Safety Report 11522711 (Version 1)
Quarter: 2015Q3

REPORT INFORMATION
  Report Type: Spontaneous
  Country: US (occurrence: US)
  Receive Date: 20150918
  Receipt Date: 20150918
  Transmission Date: 20151125
  Serious: No
  Sender: FDA-Public Use
  Company Number: US-ROCHE-715811

PATIENT
  Age: 47 Year
  Sex: Female

DRUGS (2)
  1. PEGASYS [Suspect]
     Active Substance: PEGINTERFERON ALFA-2A
     Indication: HEPATITIS C
     Dosage: FORM: PRE-FILLED SYRINGE
     Route: 065
     Dates: start: 20100618, end: 20100906
  2. RIBAVIRIN. [Suspect]
     Active Substance: RIBAVIRIN
     Indication: HEPATITIS C
     Dosage: DIVIDED DOSES, FORM: PILLS
     Route: 048
     Dates: start: 20100618, end: 20100906

REACTIONS (14)
  - Presyncope [Unknown]
  - Dyspnoea [Unknown]
  - Headache [Unknown]
  - Stomatitis [Unknown]
  - Dry skin [Unknown]
  - Depression [Unknown]
  - Rash [Unknown]
  - Muscle spasms [Not Recovered/Not Resolved]
  - White blood cell count decreased [Unknown]
  - Muscle spasms [Not Recovered/Not Resolved]
  - Pain in extremity [Not Recovered/Not Resolved]
  - Anxiety [Unknown]
  - Asthenia [Not Recovered/Not Resolved]
  - Fatigue [Not Recovered/Not Resolved]

NARRATIVE: CASE EVENT DATE: 20100618
